FAERS Safety Report 24589242 (Version 2)
Quarter: 2024Q4

REPORT INFORMATION
  Report Type: Spontaneous
  Country: ES (occurrence: ES)
  Receive Date: 20241107
  Receipt Date: 20241228
  Transmission Date: 20250115
  Serious: Yes (Hospitalization, Other)
  Sender: IPSEN BIOPHARMACEUTICALS, INC.
  Company Number: ES-IPSEN Group, Research and Development-2024-22366

PATIENT
  Age: 16 Year
  Sex: Male
  Weight: 53 kg

DRUGS (3)
  1. BYLVAY [Suspect]
     Active Substance: ODEVIXIBAT
     Indication: Progressive familial intrahepatic cholestasis
     Route: 065
     Dates: start: 202407
  2. BYLVAY [Suspect]
     Active Substance: ODEVIXIBAT
     Route: 065
     Dates: start: 202408
  3. BYLVAY [Suspect]
     Active Substance: ODEVIXIBAT
     Dosage: 4 CAPSULES DAILY IN THE MORNING
     Route: 065
     Dates: start: 20221121

REACTIONS (4)
  - Hepatitis [Not Recovered/Not Resolved]
  - Transaminases increased [Not Recovered/Not Resolved]
  - Gamma-glutamyltransferase increased [Not Recovered/Not Resolved]
  - Pyrexia [Unknown]

NARRATIVE: CASE EVENT DATE: 20240801
